FAERS Safety Report 19101286 (Version 1)
Quarter: 2021Q2

REPORT INFORMATION
  Report Type: Spontaneous
  Country: US (occurrence: US)
  Receive Date: 20210406
  Receipt Date: 20210406
  Transmission Date: 20210717
  Serious: Yes (Other)
  Sender: FDA-Public Use
  Company Number: None

PATIENT
  Age: 56 Year
  Sex: Female
  Weight: 49.9 kg

DRUGS (2)
  1. KAITLIB FE [Suspect]
     Active Substance: ETHINYL ESTRADIOL\NORETHINDRONE
     Indication: CONTRACEPTION
     Dosage: ?          OTHER DOSE:1 PILL;?
     Route: 048
     Dates: start: 20180515, end: 20180610
  2. LO LOESTRIN FE [Suspect]
     Active Substance: ETHINYL ESTRADIOL\NORETHINDRONE ACETATE
     Indication: CONTRACEPTION
     Dosage: ?          OTHER DOSE:1 PILL;?
     Route: 048
     Dates: start: 20180615, end: 20180711

REACTIONS (3)
  - Abdominal discomfort [None]
  - Rash [None]
  - Blood glucose increased [None]

NARRATIVE: CASE EVENT DATE: 20180515
